FAERS Safety Report 7623147-5 (Version None)
Quarter: 2011Q3

REPORT INFORMATION
  Report Type: 
  Country: None (occurrence: None)
  Receive Date: 20110720
  Receipt Date: 20110711
  Transmission Date: 20111222
  Serious: Yes (Life-Threatening, Hospitalization)
  Sender: FDA-Public Use
  Company Number: PHHY2011US42725

PATIENT
  Sex: Female

DRUGS (3)
  1. GILENYA [Suspect]
     Indication: MULTIPLE SCLEROSIS
     Dosage: 0.5 MG, DAILY
     Route: 048
     Dates: start: 20110428, end: 20110522
  2. YASMIN [Concomitant]
     Indication: CONTRACEPTION
     Dosage: 3002 MG, UNK
  3. VITAMIN B COMPLEX CAP [Concomitant]
     Indication: FATIGUE
     Dosage: UNK UKN, QD

REACTIONS (11)
  - DEHYDRATION [None]
  - THIRST [None]
  - URINARY TRACT INFECTION [None]
  - ASTHENIA [None]
  - PARAESTHESIA [None]
  - MULTIPLE SCLEROSIS RELAPSE [None]
  - CENTRAL NERVOUS SYSTEM LESION [None]
  - CONSTIPATION [None]
  - URINARY RETENTION [None]
  - BOWEL MOVEMENT IRREGULARITY [None]
  - DRY MOUTH [None]
